FAERS Safety Report 8496073-X (Version None)
Quarter: 2012Q3

REPORT INFORMATION
  Report Type: 
  Country: None (occurrence: None)
  Receive Date: 20120709
  Receipt Date: 20120625
  Transmission Date: 20120928
  Serious: Yes (Death)
  Sender: FDA-Public Use
  Company Number: US-MYLANLABS-2009S1013993

PATIENT
  Age: 34 Year
  Sex: Female
  Weight: 74.84 kg

DRUGS (11)
  1. PROMETHAZINE [Concomitant]
  2. ZOLOFT [Concomitant]
  3. FENTANYL-100 [Suspect]
     Indication: PAIN
     Dosage: CHANGED Q3D
     Route: 062
  4. GLYBURIDE [Concomitant]
  5. ALBUTEROL [Concomitant]
  6. HYDROCODONE BITARTRATE AND ACETAMINOPHEN [Concomitant]
  7. CITALOPRAM HYDROBROMIDE [Concomitant]
  8. OXYGEN [Concomitant]
  9. CHLORPHENIRAMINE MALEATE [Concomitant]
  10. ADVAIR DISKUS 100/50 [Concomitant]
  11. LEXAPRO [Concomitant]

REACTIONS (3)
  - TOXICITY TO VARIOUS AGENTS [None]
  - OVERDOSE [None]
  - ACUTE RESPIRATORY FAILURE [None]
